FAERS Safety Report 18250099 (Version 2)
Quarter: 2020Q3

REPORT INFORMATION
  Report Type: Spontaneous
  Country: AU (occurrence: AU)
  Receive Date: 20200909
  Receipt Date: 20200918
  Transmission Date: 20201103
  Serious: Yes (Hospitalization, Other)
  Sender: FDA-Public Use
  Company Number: AU-BAUSCH-BL-2020-025427

PATIENT
  Sex: Male

DRUGS (7)
  1. PREDNISOLONE. [Suspect]
     Active Substance: PREDNISOLONE
     Indication: PULMONARY SARCOIDOSIS
     Dosage: LOW UNKNOWN DOSE
     Route: 048
  2. PREDNISOLONE. [Suspect]
     Active Substance: PREDNISOLONE
     Indication: PRODUCT USE IN UNAPPROVED INDICATION
     Route: 048
  3. METHOTREXATE. [Concomitant]
     Active Substance: METHOTREXATE
     Indication: PRODUCT USED FOR UNKNOWN INDICATION
  4. PREDNISOLONE. [Suspect]
     Active Substance: PREDNISOLONE
     Indication: NEUROSARCOIDOSIS
     Dosage: AT A HIGH UNKNOWN DOSE
     Route: 048
  5. PREDNISOLONE. [Suspect]
     Active Substance: PREDNISOLONE
     Indication: SPINAL CORD INJURY THORACIC
     Dosage: APPROXIMATELY 15MG DOSE
     Route: 048
  6. INFLIXIMAB [Concomitant]
     Active Substance: INFLIXIMAB
     Indication: PRODUCT USED FOR UNKNOWN INDICATION
     Dosage: COMMENCED NOVEMBER 2019
     Dates: start: 201911
  7. MYCOPHENOLATE MOFETIL. [Concomitant]
     Active Substance: MYCOPHENOLATE MOFETIL
     Indication: PRODUCT USED FOR UNKNOWN INDICATION

REACTIONS (12)
  - Type 2 diabetes mellitus [Unknown]
  - Depression [Unknown]
  - Sleep apnoea syndrome [Unknown]
  - Fracture [Unknown]
  - Myopathy [Unknown]
  - Cataract [Recovered/Resolved]
  - Urinary tract infection [Unknown]
  - Obesity [Unknown]
  - Osteoporosis [Unknown]
  - Product use in unapproved indication [Unknown]
  - Urosepsis [Unknown]
  - Infection [Unknown]
